FAERS Safety Report 13296563 (Version 1)
Quarter: 2017Q1

REPORT INFORMATION
  Report Type: Report from Study
  Country: GB (occurrence: GB)
  Receive Date: 20170306
  Receipt Date: 20170306
  Transmission Date: 20170428
  Serious: Yes (Hospitalization)
  Sender: FDA-Public Use
  Company Number: GB-ROCHE-1901072

PATIENT
  Sex: Female
  Weight: 52 kg

DRUGS (1)
  1. TOCILIZUMAB [Suspect]
     Active Substance: TOCILIZUMAB
     Indication: RHEUMATOID ARTHRITIS
     Route: 065
     Dates: start: 20140320, end: 20160728

REACTIONS (2)
  - Cellulitis [Unknown]
  - Limb injury [Unknown]

NARRATIVE: CASE EVENT DATE: 20160703
